FAERS Safety Report 7991908-9 (Version None)
Quarter: 2011Q4

REPORT INFORMATION
  Report Type: 
  Country: None (occurrence: None)
  Receive Date: 20111219
  Receipt Date: 20111214
  Transmission Date: 20120403
  Serious: Yes (Other)
  Sender: FDA-Public Use
  Company Number: US-PFIZER INC-2011304888

PATIENT
  Sex: Female
  Weight: 57.596 kg

DRUGS (2)
  1. EFFEXOR [Suspect]
     Indication: SOCIAL PHOBIA
     Dosage: 37.5 MG, 1X/DAY
     Route: 048
     Dates: start: 20110627, end: 20110101
  2. EFFEXOR [Suspect]
     Dosage: DOSE WAS INCREASED TO AN UNKNOWN AMOUNT
     Route: 048
     Dates: start: 20110101, end: 20111101

REACTIONS (14)
  - CONSTIPATION [None]
  - DIZZINESS [None]
  - NAUSEA [None]
  - DRY MOUTH [None]
  - DISTURBANCE IN ATTENTION [None]
  - ANAEMIA [None]
  - WHITE BLOOD CELL COUNT DECREASED [None]
  - PARAESTHESIA [None]
  - BLOOD URINE PRESENT [None]
  - INSOMNIA [None]
  - RED BLOOD CELL COUNT DECREASED [None]
  - HEADACHE [None]
  - VERTIGO [None]
  - AMNESIA [None]
